FAERS Safety Report 8298794-0 (Version None)
Quarter: 2012Q2

REPORT INFORMATION
  Report Type: 
  Country: None (occurrence: None)
  Receive Date: 20120419
  Receipt Date: 20120409
  Transmission Date: 20120825
  Serious: Yes (Other)
  Sender: FDA-Public Use
  Company Number: US-ELI_LILLY_AND_COMPANY-US201204003435

PATIENT

DRUGS (3)
  1. DEXAMETHASONE [Concomitant]
     Dosage: UNK, UNKNOWN
  2. GEMZAR [Suspect]
     Indication: ADENOCARCINOMA PANCREAS
     Dosage: 1000 MG/M2, DAY 1, 8 AND 15 OF 28 DAY CYCLE
     Route: 042
  3. ANTIEMETICS AND ANTINAUSEANTS [Concomitant]
     Dosage: UNK, UNKNOWN

REACTIONS (1)
  - HYPONATRAEMIA [None]
